FAERS Safety Report 6968429-5 (Version None)
Quarter: 2010Q3

REPORT INFORMATION
  Report Type: 
  Country: None (occurrence: None)
  Receive Date: 20100907
  Receipt Date: 20100825
  Transmission Date: 20110219
  Serious: Yes (Other)
  Sender: FDA-Public Use
  Company Number: PHHY2010IN57683

PATIENT
  Age: 76 Year
  Sex: Male

DRUGS (1)
  1. ZOLEDRONIC ACID [Suspect]
     Indication: MULTIPLE MYELOMA
     Dosage: 4 MG MONTHLY
     Route: 042

REACTIONS (7)
  - BONE DISORDER [None]
  - MOUTH ULCERATION [None]
  - OSTEONECROSIS OF JAW [None]
  - PAIN IN JAW [None]
  - PALATAL DISORDER [None]
  - PALATAL OEDEMA [None]
  - SEQUESTRECTOMY [None]
